FAERS Safety Report 17684097 (Version 1)
Quarter: 2020Q2

REPORT INFORMATION
  Report Type: Report from Study
  Country: US (occurrence: US)
  Receive Date: 20200420
  Receipt Date: 20200420
  Transmission Date: 20200714
  Serious: Yes (Other)
  Sender: FDA-Public Use
  Company Number: NVSC2020US103917

PATIENT
  Age: 63 Year
  Sex: Female

DRUGS (1)
  1. KISQALI [Suspect]
     Active Substance: RIBOCICLIB
     Indication: BREAST CANCER METASTATIC
     Route: 065

REACTIONS (8)
  - Pain [Unknown]
  - Night sweats [Unknown]
  - Malignant neoplasm progression [Unknown]
  - Pruritus [Unknown]
  - Breast cancer metastatic [Unknown]
  - Blood potassium decreased [Unknown]
  - Hair texture abnormal [Unknown]
  - Nausea [Unknown]
